FAERS Safety Report 18110604 (Version 1)
Quarter: 2020Q3

REPORT INFORMATION
  Report Type: Report from Study
  Country: US (occurrence: US)
  Receive Date: 20200804
  Receipt Date: 20200804
  Transmission Date: 20201103
  Serious: Yes (Hospitalization, Other)
  Sender: FDA-Public Use
  Company Number: US-ACTELION-A-US2016-136476

PATIENT
  Age: 73 Year
  Sex: Female
  Weight: 45.35 kg

DRUGS (3)
  1. OPSUMIT [Suspect]
     Active Substance: MACITENTAN
     Indication: PULMONARY ARTERIAL HYPERTENSION
     Dosage: 10 MG, QD
     Route: 048
     Dates: start: 20150728
  2. ELIQUIS [Concomitant]
     Active Substance: APIXABAN
  3. CEPHALEXINE [Suspect]
     Active Substance: CEPHALEXIN
     Indication: PRODUCT USED FOR UNKNOWN INDICATION
     Route: 065

REACTIONS (21)
  - Left ventricular failure [Recovered/Resolved with Sequelae]
  - Fatigue [Unknown]
  - Atrial fibrillation [Unknown]
  - Dyspnoea [Not Recovered/Not Resolved]
  - Asthenia [Recovered/Resolved with Sequelae]
  - Chest pain [Recovered/Resolved with Sequelae]
  - Malaise [Unknown]
  - Migraine [Unknown]
  - Presyncope [Unknown]
  - Palpitations [Recovered/Resolved with Sequelae]
  - Nasopharyngitis [Unknown]
  - Abdominal discomfort [Unknown]
  - Condition aggravated [Recovered/Resolved]
  - Acute kidney injury [Recovered/Resolved with Sequelae]
  - Lethargy [Recovered/Resolved with Sequelae]
  - Anaemia [Not Recovered/Not Resolved]
  - Mitral valve incompetence [Unknown]
  - Skin cancer [Unknown]
  - Cardiac valve disease [Unknown]
  - Decreased appetite [Unknown]
  - Atrial flutter [Unknown]

NARRATIVE: CASE EVENT DATE: 20160122
